FAERS Safety Report 7559685-3 (Version None)
Quarter: 2011Q2

REPORT INFORMATION
  Report Type: 
  Country: None (occurrence: None)
  Receive Date: 20110621
  Receipt Date: 20110608
  Transmission Date: 20111010
  Serious: Yes (Hospitalization, Other)
  Sender: FDA-Public Use
  Company Number: US-ELI_LILLY_AND_COMPANY-US201106002818

PATIENT
  Age: 38 Year
  Sex: Male

DRUGS (5)
  1. STRATTERA [Suspect]
     Dosage: 80 MG, QD
     Dates: end: 20100101
  2. VICODIN [Concomitant]
  3. CYCLOBENZAPRINE [Concomitant]
  4. STRATTERA [Suspect]
     Indication: ATTENTION DEFICIT/HYPERACTIVITY DISORDER
     Dosage: 60 MG, QD
     Dates: start: 20040101
  5. STRATTERA [Suspect]
     Dosage: 100 MG, QD
     Dates: start: 20100101

REACTIONS (4)
  - NECK PAIN [None]
  - GASTRIC BYPASS [None]
  - HYPERTENSION [None]
  - DRUG EFFECT DECREASED [None]
